FAERS Safety Report 10699874 (Version 1)
Quarter: 2015Q1

REPORT INFORMATION
  Report Type: Spontaneous
  Country: IT (occurrence: IT)
  Receive Date: 20150109
  Receipt Date: 20150109
  Transmission Date: 20150721
  Serious: Yes (Other)
  Sender: FDA-Public Use
  Company Number: PHHY2015IT000581

PATIENT
  Age: 76 Year
  Sex: Male

DRUGS (5)
  1. ZOLEDRONATE [Suspect]
     Active Substance: ZOLEDRONIC ACID
     Indication: METASTASES TO BONE
     Route: 042
  2. ESTRAMUSTINE [Suspect]
     Active Substance: ESTRAMUSTINE
     Indication: METASTASES TO BONE
     Dosage: 560 MG, QD
     Route: 048
  3. LEUPROLIDE//LEUPRORELIN [Concomitant]
     Indication: PROSTATE CANCER
     Route: 065
  4. DOCETAXEL. [Suspect]
     Active Substance: DOCETAXEL
     Indication: METASTASES TO BONE
     Dosage: 40 MG/M2, UNK (ON DAYS 1, 8, 15, 22, AND 29 IN A 6-WEEK CYCLE)
     Route: 042
     Dates: start: 201107
  5. BICALUTAMIDE. [Concomitant]
     Active Substance: BICALUTAMIDE
     Indication: PROSTATE CANCER
     Route: 048

REACTIONS (10)
  - Anaemia [Unknown]
  - Osteosclerosis [Unknown]
  - Nail disorder [Unknown]
  - Fatigue [Unknown]
  - Renal impairment [Unknown]
  - Neutropenia [Unknown]
  - Performance status decreased [Unknown]
  - Prostatic specific antigen increased [Recovering/Resolving]
  - Dry eye [Unknown]
  - Thrombocytopenia [Unknown]
